FAERS Safety Report 5384553-5 (Version None)
Quarter: 2007Q3

REPORT INFORMATION
  Report Type: 
  Country: None (occurrence: None)
  Receive Date: 20070711
  Receipt Date: 20070702
  Transmission Date: 20080115
  Serious: Yes (Hospitalization, Other)
  Sender: FDA-Public Use
  Company Number: US-PFIZER INC-2006151148

PATIENT
  Sex: Female
  Weight: 61.2 kg

DRUGS (4)
  1. BEXTRA [Suspect]
     Indication: PAIN IN EXTREMITY
  2. VIOXX [Suspect]
     Indication: PAIN IN EXTREMITY
     Route: 048
     Dates: start: 20040802, end: 20040930
  3. VITAMIN CAP [Concomitant]
  4. ALLEGRA [Concomitant]
     Indication: HYPERSENSITIVITY

REACTIONS (1)
  - CEREBROVASCULAR ACCIDENT [None]
